FAERS Safety Report 25011646 (Version 1)
Quarter: 2025Q1

REPORT INFORMATION
  Report Type: Spontaneous
  Country: CH (occurrence: CH)
  Receive Date: 20250226
  Receipt Date: 20250226
  Transmission Date: 20250408
  Serious: Yes (Death, Hospitalization)
  Sender: ROCHE
  Company Number: None

PATIENT
  Age: 61 Year
  Sex: Male
  Weight: 66 kg

DRUGS (20)
  1. TECENTRIQ [Suspect]
     Active Substance: ATEZOLIZUMAB
     Indication: Pancreatic carcinoma metastatic
     Route: 042
     Dates: start: 20241127, end: 20241206
  2. ABRAXANE [Suspect]
     Active Substance: PACLITAXEL
     Indication: Pancreatic carcinoma metastatic
     Route: 042
     Dates: start: 20241127, end: 20241206
  3. GEMCITABINE [Suspect]
     Active Substance: GEMCITABINE
     Indication: Pancreatic carcinoma metastatic
     Route: 042
     Dates: start: 20241127, end: 20241206
  4. PREDNISOLONE [Suspect]
     Active Substance: PREDNISOLONE
     Indication: Pancreatic carcinoma metastatic
     Dosage: NON NOTE INFORMAZIONI SU DOSAGGIO, POSOLOGIA, DATA ESATTA DI INIZIO E FINE DELLA TERAPIA
     Route: 048
  5. Transipeg [Concomitant]
     Route: 048
     Dates: start: 20250113, end: 20250114
  6. SODIUM PICOSULFATE [Concomitant]
     Active Substance: SODIUM PICOSULFATE
     Dates: start: 20250111, end: 20250111
  7. BALDRIANWURZEL [Concomitant]
     Dates: start: 20250115, end: 20250115
  8. MAGNESIUM [Concomitant]
     Active Substance: MAGNESIUM
     Route: 048
     Dates: start: 20250113, end: 20250116
  9. GLICEROL [Concomitant]
     Dates: start: 20250111, end: 20250111
  10. SULFAMETHOXAZOLE\TRIMETHOPRIM [Concomitant]
     Active Substance: SULFAMETHOXAZOLE\TRIMETHOPRIM
     Route: 048
     Dates: start: 20250113, end: 20250116
  11. INSULIN GLARGINE [Concomitant]
     Active Substance: INSULIN GLARGINE
     Indication: Steroid diabetes
     Route: 048
     Dates: start: 20250116, end: 20250116
  12. IOBITRIDOL [Concomitant]
     Active Substance: IOBITRIDOL
     Route: 042
     Dates: start: 20250110, end: 20250110
  13. LACTULOSE [Concomitant]
     Active Substance: LACTULOSE
     Route: 048
     Dates: start: 20250112, end: 20250114
  14. NOVORAPID [Concomitant]
     Active Substance: INSULIN ASPART
     Indication: Steroid diabetes
     Route: 058
     Dates: start: 20250111, end: 20250116
  15. PHYTONADIONE EPOXIDE [Concomitant]
     Active Substance: PHYTONADIONE EPOXIDE
     Dates: start: 20250116, end: 20250116
  16. ASPIRIN [Concomitant]
     Active Substance: ASPIRIN
     Indication: Pain
     Route: 048
     Dates: start: 20250111, end: 20250116
  17. MORPHINE [Concomitant]
     Active Substance: MORPHINE
     Route: 042
     Dates: start: 20250116, end: 20250116
  18. DOMPERDONE [Concomitant]
     Indication: Nausea
     Route: 048
     Dates: start: 20250114, end: 20250116
  19. MYCOPHENOLATE MOFETIL [Concomitant]
     Active Substance: MYCOPHENOLATE MOFETIL
     Route: 048
     Dates: start: 20250111, end: 20250116
  20. PREDNISOLONE [Concomitant]
     Active Substance: PREDNISOLONE
     Route: 048
     Dates: start: 20250111, end: 20250116

REACTIONS (2)
  - Drug-induced liver injury [Fatal]
  - Diabetes mellitus [Recovering/Resolving]

NARRATIVE: CASE EVENT DATE: 20241206
